FAERS Safety Report 7531459-9 (Version None)
Quarter: 2011Q2

REPORT INFORMATION
  Report Type: 
  Country: None (occurrence: None)
  Receive Date: 20110608
  Receipt Date: 20110531
  Transmission Date: 20111010
  Serious: Yes (Hospitalization, Other)
  Sender: FDA-Public Use
  Company Number: US-NOVOPROD-329140

PATIENT
  Sex: Female
  Weight: 91.156 kg

DRUGS (4)
  1. MOBIC [Concomitant]
     Indication: ARTHRITIS
  2. LEVEMIR [Suspect]
     Indication: TYPE 2 DIABETES MELLITUS
     Dosage: 14 U, QD (7 AM, 7PM)
     Dates: start: 20101201
  3. NOVOLOG [Suspect]
     Indication: TYPE 2 DIABETES MELLITUS
     Dosage: SLIDING SCALE
     Route: 058
     Dates: start: 20110301
  4. OMEPRAZOLE [Concomitant]
     Indication: GASTRIC DISORDER

REACTIONS (2)
  - RENAL DISORDER [None]
  - BLOOD GLUCOSE FLUCTUATION [None]
